FAERS Safety Report 5191871-2 (Version None)
Quarter: 2006Q4

REPORT INFORMATION
  Report Type: 
  Country: None (occurrence: None)
  Receive Date: 20061220
  Receipt Date: 20061204
  Transmission Date: 20070319
  Serious: Yes (Other)
  Sender: FDA-Public Use
  Company Number: 2006BI017783

PATIENT
  Age: 34 Year
  Sex: Female

DRUGS (2)
  1. AVONEX [Suspect]
     Indication: MULTIPLE SCLEROSIS
     Dates: start: 20010101
  2. AVONEX [Suspect]
     Indication: MULTIPLE SCLEROSIS
     Dates: start: 20060401, end: 20060530

REACTIONS (5)
  - BLADDER DISORDER [None]
  - BLINDNESS UNILATERAL [None]
  - DYSARTHRIA [None]
  - HYSTERECTOMY [None]
  - MUSCULAR WEAKNESS [None]
